FAERS Safety Report 5187210-3 (Version None)
Quarter: 2006Q4

REPORT INFORMATION
  Report Type: 
  Country: None (occurrence: None)
  Receive Date: 20061214
  Receipt Date: 20061201
  Transmission Date: 20070319
  Serious: Yes (Hospitalization)
  Sender: FDA-Public Use
  Company Number: 2006150342

PATIENT
  Age: 64 Year
  Sex: Female
  Weight: 67 kg

DRUGS (5)
  1. DOXYCYCLINE [Suspect]
     Indication: BLEPHARITIS
     Dosage: 200 MG (100 MG, 2 IN 1 D)
     Dates: end: 20061106
  2. ALENDRONATE SODIUM [Concomitant]
  3. CODEINE SUL TAB [Concomitant]
  4. ACETAMINOPHEN [Concomitant]
  5. VITAMIN B12 [Concomitant]

REACTIONS (6)
  - ALANINE AMINOTRANSFERASE INCREASED [None]
  - GAMMA-GLUTAMYLTRANSFERASE INCREASED [None]
  - JAUNDICE [None]
  - MALAISE [None]
  - NAUSEA [None]
  - VOMITING [None]
